FAERS Safety Report 8544035-6 (Version None)
Quarter: 2012Q3

REPORT INFORMATION
  Report Type: 
  Country: None (occurrence: None)
  Receive Date: 20120727
  Receipt Date: 20120723
  Transmission Date: 20120928
  Serious: Yes (Death, Hospitalization, Other)
  Sender: FDA-Public Use
  Company Number: US-PFIZER INC-2012120002

PATIENT
  Sex: Female
  Weight: 74.376 kg

DRUGS (17)
  1. LORAZEPAM [Concomitant]
     Dosage: 0.5 MG, AS NEEDED
  2. POTASSIUM [Concomitant]
     Dosage: 20 MG, 1X/DAY
  3. COUMADIN [Concomitant]
     Indication: THROMBOSIS
     Dosage: UNK
  4. ZANTAC [Concomitant]
     Dosage: 150 MG, 1X/DAY
  5. ATIVAN [Concomitant]
     Dosage: UNK, 4X/DAY
  6. REVATIO [Suspect]
     Dosage: 20 MG, 3X/DAY
     Route: 048
     Dates: start: 20120201, end: 20120101
  7. REVATIO [Suspect]
     Dosage: 40 MG, 3X/DAY
     Route: 048
     Dates: start: 20120101, end: 20120718
  8. ASPIRIN [Concomitant]
     Dosage: UNK, DAILY
  9. VICODIN [Concomitant]
     Dosage: UNK, AS NEEDED
  10. PRIMIDONE [Concomitant]
     Dosage: UNK
  11. METOPROLOL [Concomitant]
     Dosage: UNK, 2X/DAY
  12. CALTRATE 600 [Concomitant]
     Dosage: UNK, DAILY
  13. LASIX [Concomitant]
     Dosage: 40 MG ONE DAY AND 80 MG NEXT DAY, DAILY
  14. REVATIO [Suspect]
     Indication: PULMONARY HYPERTENSION
     Dosage: UNK, 3X/DAY
     Route: 048
  15. REVATIO [Suspect]
     Dosage: UNK, 6X/DAY
     Route: 048
     Dates: start: 20120412
  16. COUMADIN [Concomitant]
     Indication: ANTICOAGULANT THERAPY
     Dosage: UNK
  17. ADVAIR [Concomitant]
     Dosage: 1 PUFF AT AN UNKNOWN DOSE, 2X/DAY

REACTIONS (3)
  - HYPOXIA [None]
  - FALL [None]
  - DRUG INEFFECTIVE [None]
